FAERS Safety Report 13494951 (Version 1)
Quarter: 2017Q2

REPORT INFORMATION
  Report Type: Spontaneous
  Country: US (occurrence: US)
  Receive Date: 20170428
  Receipt Date: 20170428
  Transmission Date: 20170830
  Serious: No
  Sender: FDA-Public Use
  Company Number: US-ASTRAZENECA-2017SE41358

PATIENT
  Age: 50 Year
  Sex: Female
  Weight: 79.4 kg

DRUGS (5)
  1. NEXIUM 24HR [Suspect]
     Active Substance: ESOMEPRAZOLE MAGNESIUM
     Indication: GASTROOESOPHAGEAL REFLUX DISEASE
     Dosage: UNKNOWN
     Route: 048
     Dates: start: 2014, end: 2014
  2. NEXIUM [Suspect]
     Active Substance: ESOMEPRAZOLE MAGNESIUM
     Indication: GASTROOESOPHAGEAL REFLUX DISEASE
     Route: 048
     Dates: start: 2002, end: 2014
  3. NEXIUM [Suspect]
     Active Substance: ESOMEPRAZOLE MAGNESIUM
     Indication: GASTROOESOPHAGEAL REFLUX DISEASE
     Dosage: 40 MG IN THE MORNING AND 20 MG AT NIGHT
     Route: 048
     Dates: start: 2014
  4. KLONOPIN [Concomitant]
     Active Substance: CLONAZEPAM
     Indication: RESTLESS LEGS SYNDROME
     Dates: start: 2011
  5. BONIVA [Concomitant]
     Active Substance: IBANDRONATE SODIUM
     Indication: BONE DISORDER
     Dates: start: 2013

REACTIONS (15)
  - Chest pain [Unknown]
  - Drug ineffective [Recovered/Resolved]
  - Oesophageal ulcer [Unknown]
  - Menopause [Unknown]
  - Product use issue [Unknown]
  - Sleep disorder [Not Recovered/Not Resolved]
  - Gastritis erosive [Unknown]
  - Restless legs syndrome [Not Recovered/Not Resolved]
  - Condition aggravated [Not Recovered/Not Resolved]
  - Bone disorder [Unknown]
  - Dyspepsia [Unknown]
  - Eructation [Not Recovered/Not Resolved]
  - Throat irritation [Unknown]
  - Gastric ulcer [Unknown]
  - Regurgitation [Unknown]

NARRATIVE: CASE EVENT DATE: 2002
